FAERS Safety Report 6077940-3 (Version None)
Quarter: 2009Q1

REPORT INFORMATION
  Report Type: 
  Country: None (occurrence: None)
  Receive Date: 20090213
  Receipt Date: 20080924
  Transmission Date: 20090719
  Serious: Yes (Death, Hospitalization)
  Sender: FDA-Public Use
  Company Number: GB-ROCHE-612778

PATIENT
  Age: 63 Year

DRUGS (2)
  1. XELODA [Suspect]
     Route: 065
  2. OXALIPLATIN [Concomitant]

REACTIONS (4)
  - DEATH [None]
  - DIARRHOEA [None]
  - RENAL FAILURE ACUTE [None]
  - VOMITING [None]
